FAERS Safety Report 16404249 (Version 1)
Quarter: 2019Q2

REPORT INFORMATION
  Report Type: Report from Study
  Country: US (occurrence: US)
  Receive Date: 20190607
  Receipt Date: 20190607
  Transmission Date: 20190711
  Serious: Yes (Hospitalization)
  Sender: FDA-Public Use
  Company Number: US-EMD SERONO-E2B_90068243

PATIENT
  Age: 68 Year
  Sex: Male
  Weight: 89 kg

DRUGS (4)
  1. INLYTA [Suspect]
     Active Substance: AXITINIB
     Dosage: 3 MG, TWICE DAILY CONTINUOUS
     Route: 048
     Dates: start: 20180104, end: 20190323
  2. INLYTA [Suspect]
     Active Substance: AXITINIB
     Indication: RENAL CELL CARCINOMA
     Dosage: 5 MG, TWICE DAILY CONTINUOUS
     Route: 048
     Dates: start: 20170706, end: 20171220
  3. AVELUMAB [Suspect]
     Active Substance: AVELUMAB
     Indication: RENAL CELL CARCINOMA
     Dosage: 900 MG, EVERY 2 WEEKS
     Route: 042
     Dates: start: 20170706, end: 20190425
  4. INLYTA [Suspect]
     Active Substance: AXITINIB
     Dosage: 2 MG, TWICE DAILY CONTINUOUS
     Route: 048
     Dates: start: 20190411, end: 20190429

REACTIONS (2)
  - Glaucoma [Not Recovered/Not Resolved]
  - Optic neuropathy [Not Recovered/Not Resolved]

NARRATIVE: CASE EVENT DATE: 20190520
